FAERS Safety Report 17512429 (Version 2)
Quarter: 2020Q1

REPORT INFORMATION
  Report Type: Report from Study
  Country: FR (occurrence: FR)
  Receive Date: 20200306
  Receipt Date: 20200325
  Transmission Date: 20200409
  Serious: Yes (Hospitalization)
  Sender: FDA-Public Use
  Company Number: FR-MYLANLABS-2020M1023520

PATIENT
  Age: 64 Year
  Sex: Male

DRUGS (5)
  1. LEPONEX [Suspect]
     Active Substance: CLOZAPINE
     Indication: PRODUCT USED FOR UNKNOWN INDICATION
     Dosage: 1/4 TABLET
     Route: 065
  2. MODOPAR [Concomitant]
     Active Substance: BENSERAZIDE HYDROCHLORIDE\LEVODOPA
     Indication: PRODUCT USED FOR UNKNOWN INDICATION
     Dosage: 2 DIPERSIBLE TABLETS NIGHT
  3. DUODOPA [Suspect]
     Active Substance: CARBIDOPA\LEVODOPA
     Dosage: CR: 2.5 ML/HR
     Route: 050
     Dates: start: 201910
  4. DUODOPA [Suspect]
     Active Substance: CARBIDOPA\LEVODOPA
     Indication: PARKINSON^S DISEASE
     Dosage: THERAPY STARTED ON WEEK OF WEEK OF 30-SEP-2019 CR: 2.2 ML/HR
     Route: 050
     Dates: start: 201909, end: 201910
  5. DUODOPA [Suspect]
     Active Substance: CARBIDOPA\LEVODOPA
     Dosage: DUODOPA FLOW RATE WAS INCREASED AT 2.6 ML/HOUR
     Route: 050

REACTIONS (22)
  - Stoma site inflammation [Unknown]
  - Pollakiuria [Not Recovered/Not Resolved]
  - Aggression [Unknown]
  - Urinary incontinence [Not Recovered/Not Resolved]
  - Feeling abnormal [Unknown]
  - Hallucination [Unknown]
  - Hypertension [Unknown]
  - Agitation [Unknown]
  - Product dispensing error [Unknown]
  - Malaise [Unknown]
  - Constipation [Unknown]
  - Stoma site discharge [Not Recovered/Not Resolved]
  - Obstruction [Unknown]
  - Bradykinesia [Not Recovered/Not Resolved]
  - Behaviour disorder [Unknown]
  - Freezing phenomenon [Not Recovered/Not Resolved]
  - Underdose [Unknown]
  - On and off phenomenon [Unknown]
  - Stoma site oedema [Unknown]
  - Abdominal pain [Not Recovered/Not Resolved]
  - Dysarthria [Not Recovered/Not Resolved]
  - Incorrect dose administered [Unknown]

NARRATIVE: CASE EVENT DATE: 2019
